FAERS Safety Report 9186943 (Version 1)
Quarter: 2013Q1

REPORT INFORMATION
  Report Type: Spontaneous
  Country: FR (occurrence: FR)
  Receive Date: 20130325
  Receipt Date: 20130325
  Transmission Date: 20140127
  Serious: Yes (Death)
  Sender: FDA-Public Use
  Company Number: FR-NOVOPROD-373607

PATIENT
  Sex: Male

DRUGS (1)
  1. NOVOSEVEN [Suspect]
     Indication: HAEMOPTYSIS
     Route: 065

REACTIONS (3)
  - Haemoptysis [Fatal]
  - Condition aggravated [Fatal]
  - Off label use [Unknown]
